FAERS Safety Report 8255450-2 (Version None)
Quarter: 2012Q1

REPORT INFORMATION
  Report Type: 
  Country: None (occurrence: None)
  Receive Date: 20120330
  Receipt Date: 20120320
  Transmission Date: 20120608
  Serious: Yes (Hospitalization, Other)
  Sender: FDA-Public Use
  Company Number: AUR-APL-2012-01066

PATIENT
  Age: 79 Year
  Sex: Female
  Weight: 68.03 kg

DRUGS (6)
  1. METOPROLOL TARTRATE [Suspect]
     Dosage: 2 IN 1 D, UNKNOWN
     Dates: start: 20110301
  2. NORVASC [Suspect]
     Indication: BLOOD PRESSURE ABNORMAL
     Dosage: 1 D, ORAL
     Route: 048
     Dates: start: 20110101
  3. METFORMIN HCL [Concomitant]
  4. ACCURETIC [Suspect]
     Indication: BLOOD PRESSURE ABNORMAL
     Dosage: (2 IN 1 D),ORAL
     Route: 048
     Dates: end: 20110101
  5. COMBIGAN (COMBIGAN) [Concomitant]
  6. LUMIGAN [Concomitant]

REACTIONS (9)
  - BALANCE DISORDER [None]
  - HAEMOGLOBIN DECREASED [None]
  - URINARY TRACT INFECTION [None]
  - TRANSIENT ISCHAEMIC ATTACK [None]
  - CEREBRAL HAEMORRHAGE [None]
  - BLOOD IRON DECREASED [None]
  - HEAD INJURY [None]
  - FALL [None]
  - RENAL NEOPLASM [None]
